FAERS Safety Report 24824182 (Version 1)
Quarter: 2025Q1

REPORT INFORMATION
  Report Type: Spontaneous
  Country: US (occurrence: US)
  Receive Date: 20250109
  Receipt Date: 20250109
  Transmission Date: 20250409
  Serious: Yes (Other)
  Sender: RANBAXY
  Company Number: US-SUN PHARMACEUTICAL INDUSTRIES LTD-2024R1-487980

PATIENT
  Age: 79 Year
  Sex: Female

DRUGS (2)
  1. METHOTREXATE [Suspect]
     Active Substance: METHOTREXATE
     Indication: Crohn^s disease
     Dosage: 2.5 MILLIGRAM, 3/WEEK
     Route: 065
     Dates: start: 201505
  2. METHOTREXATE [Suspect]
     Active Substance: METHOTREXATE
     Indication: Vitritis
     Dosage: 10 MILLIGRAM, 3/WEEK
     Route: 065
     Dates: start: 2020

REACTIONS (1)
  - Pulmonary hypertension [Unknown]
